FAERS Safety Report 9655211 (Version 1)
Quarter: 2013Q4

REPORT INFORMATION
  Report Type: Spontaneous
  Country: US (occurrence: US)
  Receive Date: 20131029
  Receipt Date: 20131029
  Transmission Date: 20140711
  Serious: No
  Sender: FDA-Public Use
  Company Number: US-PURDUE-USA-2012-0086878

PATIENT
  Age: 75 Year
  Sex: Male

DRUGS (13)
  1. OXYCONTIN (NDA 22-272) [Suspect]
     Indication: PAIN
     Dosage: 10 MG, BID
     Route: 048
     Dates: start: 20120323
  2. GABAPENTIN [Concomitant]
     Indication: PARKINSON^S DISEASE
     Dosage: 300 MG, TID
     Route: 048
  3. CARBIDOPA/LEVODOPA [Concomitant]
     Indication: PARKINSON^S DISEASE
     Dosage: 25/100MG 2 1/2 TABLETS TID BEFORE MEALS
     Route: 048
  4. DIAZEPAM [Concomitant]
     Indication: MUSCLE SPASMS
     Dosage: 5 MG, HS
     Route: 048
  5. PROTONIX [Concomitant]
     Indication: GASTROOESOPHAGEAL REFLUX DISEASE
     Dosage: 40 MG, BID BEFORE MEALS
     Route: 048
  6. MIRAPEX [Concomitant]
     Indication: PARKINSON^S DISEASE
     Dosage: 1.5 MG, HS
     Route: 048
  7. MIRAPEX [Concomitant]
     Indication: RESTLESS LEGS SYNDROME
  8. TOPRAL                             /00586501/ [Concomitant]
     Indication: HYPERTENSION
     Dosage: 50 MG, DAILY LATE AFTERNOON
     Route: 048
  9. FLOMAX                             /00889901/ [Concomitant]
     Indication: PROSTATOMEGALY
     Dosage: 0.4 MG, DAILY LATE AFTERNOON
     Route: 048
  10. BAYER ASPIRIN [Concomitant]
     Indication: PROPHYLAXIS
     Dosage: 325 MG, HS
     Route: 048
  11. SINGULAR [Concomitant]
     Indication: HYPERSENSITIVITY
     Dosage: 10 MG, HS
     Route: 048
  12. ADVICOR [Concomitant]
     Indication: HYPERCHOLESTEROLAEMIA
     Dosage: 500MG/20MG TWO TABLETS DAILY
     Route: 048
  13. TIMOPTIC [Concomitant]
     Indication: PRODUCT USED FOR UNKNOWN INDICATION
     Dosage: 0.4 % UNK UNK

REACTIONS (3)
  - Fall [Recovered/Resolved]
  - Feeling abnormal [Recovered/Resolved]
  - Somnolence [Recovered/Resolved]
